FAERS Safety Report 8767088 (Version 1)
Quarter: 2012Q4

REPORT INFORMATION
  Report Type: 
  Country: US (occurrence: US)
  Receive Date: 20120831
  Receipt Date: 20120831
  Transmission Date: 20130627
  Serious: Yes (Hospitalization)
  Sender: FDA-Public Use
  Company Number: US-ELI_LILLY_AND_COMPANY-US201208007876

PATIENT
  Sex: Female

DRUGS (3)
  1. CYMBALTA [Suspect]
     Indication: NEURALGIA
     Dosage: 60 mg, qd
  2. CELEBREX [Concomitant]
     Dosage: UNK, unknown
  3. LEVOXYL [Concomitant]
     Dosage: UNK, unknown

REACTIONS (3)
  - Trigeminal neuralgia [Unknown]
  - Post herpetic neuralgia [Unknown]
  - Herpes zoster [Unknown]
